FAERS Safety Report 5867302-3 (Version None)
Quarter: 2008Q3

REPORT INFORMATION
  Report Type: 
  Country: None (occurrence: None)
  Receive Date: 20080829
  Receipt Date: 20080829
  Transmission Date: 20090109
  Serious: Yes (Hospitalization, Other)
  Sender: FDA-Public Use
  Company Number: None

PATIENT
  Age: 69 Year
  Sex: Male
  Weight: 72.1 kg

DRUGS (1)
  1. SULFAMETHOXAZOLE AND TRIMETHOPRIM [Suspect]
     Indication: PROSTATITIS
     Dosage: 1 TAB EVERY DAY PO
     Route: 048
     Dates: start: 20080804, end: 20080805

REACTIONS (3)
  - ANGIOEDEMA [None]
  - ERYTHEMA MULTIFORME [None]
  - URTICARIA [None]
